FAERS Safety Report 24722451 (Version 1)
Quarter: 2024Q4

REPORT INFORMATION
  Report Type: Spontaneous
  Country: US (occurrence: None)
  Receive Date: 20241210
  Receipt Date: 20241210
  Transmission Date: 20250115
  Serious: No
  Sender: Public
  Company Number: None

PATIENT
  Age: 74 Year
  Sex: Male
  Weight: 91 kg

DRUGS (2)
  1. BENZTROPINE MESYLATE [Suspect]
     Active Substance: BENZTROPINE MESYLATE
  2. ARIPIPRAZOLE [Suspect]
     Active Substance: ARIPIPRAZOLE

REACTIONS (2)
  - Hallucinations, mixed [None]
  - Abnormal behaviour [None]

NARRATIVE: CASE EVENT DATE: 20220429
